FAERS Safety Report 15065528 (Version 1)
Quarter: 2018Q2

REPORT INFORMATION
  Report Type: Spontaneous
  Country: US (occurrence: US)
  Receive Date: 20180626
  Receipt Date: 20180626
  Transmission Date: 20180711
  Serious: Yes (Hospitalization)
  Sender: FDA-Public Use
  Company Number: US-UNICHEM PHARMACEUTICALS (USA) INC-UCM201806-000142

PATIENT
  Age: 56 Year
  Sex: Female
  Weight: 97.5 kg

DRUGS (6)
  1. QUETIAPINE. [Suspect]
     Active Substance: QUETIAPINE
     Indication: BIPOLAR DISORDER
  2. LITHIUM. [Suspect]
     Active Substance: LITHIUM
  3. ARIPIPRAZOLE. [Suspect]
     Active Substance: ARIPIPRAZOLE
     Indication: BIPOLAR DISORDER
  4. LITHIUM. [Suspect]
     Active Substance: LITHIUM
  5. LITHIUM. [Suspect]
     Active Substance: LITHIUM
     Indication: BIPOLAR DISORDER
  6. ARIPIPRAZOLE. [Suspect]
     Active Substance: ARIPIPRAZOLE

REACTIONS (4)
  - Respiratory failure [Unknown]
  - Sleep apnoea syndrome [Unknown]
  - Pulmonary hypertension [Unknown]
  - Weight increased [Unknown]
